FAERS Safety Report 4469666-4 (Version None)
Quarter: 2004Q4

REPORT INFORMATION
  Report Type: 
  Country: None (occurrence: None)
  Receive Date: 20041008
  Receipt Date: 20040928
  Transmission Date: 20050328
  Serious: Yes (Hospitalization)
  Sender: FDA-Public Use
  Company Number: PHBS2004KW12986

PATIENT
  Age: 13 Year
  Sex: Female

DRUGS (1)
  1. PAMIDRONATE DISODIUM [Suspect]
     Indication: HYPERCALCAEMIA
     Dosage: 60 MG, ONCE/SINGLE

REACTIONS (3)
  - BLOOD PARATHYROID HORMONE INCREASED [None]
  - PARATHYROID TUMOUR BENIGN [None]
  - PARATHYROIDECTOMY [None]
